FAERS Safety Report 25439833 (Version 3)
Quarter: 2025Q2

REPORT INFORMATION
  Report Type: Spontaneous
  Country: FR (occurrence: FR)
  Receive Date: 20250616
  Receipt Date: 20250626
  Transmission Date: 20250716
  Serious: Yes (Life-Threatening, Hospitalization)
  Sender: UCB
  Company Number: None

PATIENT
  Age: 66 Year
  Sex: Male

DRUGS (10)
  1. LEVETIRACETAM [Suspect]
     Active Substance: LEVETIRACETAM
     Indication: Medication error
     Route: 048
     Dates: start: 20250130, end: 20250130
  2. RIVOTRIL [Suspect]
     Active Substance: CLONAZEPAM
     Indication: Medication error
     Route: 048
     Dates: start: 20250130, end: 20250130
  3. PHENOBARBITAL [Suspect]
     Active Substance: PHENOBARBITAL
     Indication: Medication error
     Route: 048
     Dates: start: 20250130, end: 20250130
  4. LAMOTRIGINE [Suspect]
     Active Substance: LAMOTRIGINE
     Indication: Medication error
     Route: 048
     Dates: start: 20250130, end: 20250130
  5. HALDOL (HALOPERIDOL LACTATE) [Suspect]
     Active Substance: HALOPERIDOL LACTATE
     Indication: Medication error
     Route: 048
     Dates: start: 20250130, end: 20250130
  6. RISPERDAL [Suspect]
     Active Substance: RISPERIDONE
     Indication: Medication error
     Route: 048
     Dates: start: 20250130, end: 20250130
  7. VITAMIN D3 [Suspect]
     Active Substance: CHOLECALCIFEROL
     Indication: Product used for unknown indication
  8. PANTOPRAZOLE [Suspect]
     Active Substance: PANTOPRAZOLE
     Indication: Product used for unknown indication
  9. SERTRALINE [Suspect]
     Active Substance: SERTRALINE HYDROCHLORIDE
     Indication: Product used for unknown indication
  10. ACETAMINOPHEN [Suspect]
     Active Substance: ACETAMINOPHEN
     Indication: Product used for unknown indication

REACTIONS (4)
  - Coma [Recovered/Resolved]
  - Hyperthermia [Recovered/Resolved]
  - Pneumonia aspiration [Recovered/Resolved]
  - Wrong patient received product [Unknown]

NARRATIVE: CASE EVENT DATE: 20250130
